FAERS Safety Report 9856196 (Version 2)
Quarter: 2014Q1

REPORT INFORMATION
  Report Type: Report from Study
  Country: BE (occurrence: BE)
  Receive Date: 20140130
  Receipt Date: 20140211
  Transmission Date: 20141002
  Serious: Yes (Hospitalization)
  Sender: FDA-Public Use
  Company Number: PHHY2014BE010537

PATIENT
  Sex: Male
  Weight: 66 kg

DRUGS (4)
  1. INDACATEROL [Suspect]
     Indication: CHRONIC OBSTRUCTIVE PULMONARY DISEASE
     Dosage: 150 UG, QD
     Route: 055
     Dates: start: 20130510
  2. SALMETEROL [Concomitant]
     Indication: CHRONIC OBSTRUCTIVE PULMONARY DISEASE
     Dosage: UNK (TICKET AT VISIT 1, BUT NOT AT VISIT 2)
  3. SALBUTAMOL [Concomitant]
     Indication: CHRONIC OBSTRUCTIVE PULMONARY DISEASE
     Dosage: UNK (TICKET AT VISIT 2 ONLY)
  4. ANTIPSYCHOTICS [Concomitant]
     Indication: NERVOUS SYSTEM DISORDER

REACTIONS (1)
  - Lung neoplasm malignant [Not Recovered/Not Resolved]
